FAERS Safety Report 20638801 (Version 1)
Quarter: 2022Q1

REPORT INFORMATION
  Report Type: Spontaneous
  Country: US (occurrence: None)
  Receive Date: 20220325
  Receipt Date: 20220325
  Transmission Date: 20220424
  Serious: No
  Sender: FDA-Public Use
  Company Number: US-MIMS-CORIMC-563

PATIENT
  Age: 8 Year
  Sex: Male

DRUGS (1)
  1. AZSTARYS [Suspect]
     Active Substance: DEXMETHYLPHENIDATE HYDROCHLORIDE\SERDEXMETHYLPHENIDATE CHLORIDE
     Indication: Attention deficit hyperactivity disorder
     Dosage: 39.2/7.8 MG
     Route: 048
     Dates: start: 20220202, end: 20220209

REACTIONS (1)
  - Abdominal pain upper [Unknown]
